FAERS Safety Report 4724319-X (Version None)
Quarter: 2005Q3

REPORT INFORMATION
  Report Type: 
  Country: None (occurrence: None)
  Receive Date: 20050722
  Receipt Date: 20050722
  Transmission Date: 20060218
  Serious: Yes (Other)
  Sender: FDA-Public Use
  Company Number: None

PATIENT
  Age: 85 Year
  Sex: Female
  Weight: 52.1637 kg

DRUGS (1)
  1. SALSALATE 500 MG TABLET ROUND TURQUOISE (ABLE LABS) [Suspect]
     Indication: OSTEOARTHRITIS
     Dosage: 1 BID
     Dates: start: 20030519, end: 20030521

REACTIONS (5)
  - DRY SKIN [None]
  - ERYTHEMA [None]
  - PAIN OF SKIN [None]
  - SUNBURN [None]
  - THERMAL BURN [None]
